FAERS Safety Report 23636094 (Version 1)
Quarter: 2024Q1

REPORT INFORMATION
  Report Type: Spontaneous
  Country: US (occurrence: None)
  Receive Date: 20240314
  Receipt Date: 20240314
  Transmission Date: 20240409
  Serious: No
  Sender: FDA-Public Use
  Company Number: None

PATIENT
  Age: 32 Year
  Sex: Female

DRUGS (1)
  1. COSENTYX [Suspect]
     Active Substance: SECUKINUMAB
     Indication: Hidradenitis
     Dosage: INJECT 300MG (2 PENS) SUBCUTANEOUSLY ONCE A WEEK FOR 5  WEEKS ROTATING INJECTION SITES AS ??ON HOLD
     Route: 058
     Dates: start: 202402

REACTIONS (1)
  - Surgery [None]
